FAERS Safety Report 12134018 (Version 1)
Quarter: 2016Q1

REPORT INFORMATION
  Report Type: Spontaneous
  Country: US (occurrence: US)
  Receive Date: 20160301
  Receipt Date: 20160301
  Transmission Date: 20160526
  Serious: No
  Sender: FDA-Public Use
  Company Number: US-INSYS THERAPEUTICS, INC-INS201507-000304

PATIENT
  Sex: Female

DRUGS (2)
  1. SUBSYS [Suspect]
     Active Substance: FENTANYL
     Dates: end: 20150604
  2. SUBSYS [Suspect]
     Active Substance: FENTANYL
     Dates: start: 20150416

REACTIONS (2)
  - Off label use [Unknown]
  - Nausea [Recovered/Resolved]
